FAERS Safety Report 24873755 (Version 1)
Quarter: 2025Q1

REPORT INFORMATION
  Report Type: Spontaneous
  Country: US (occurrence: US)
  Receive Date: 20250122
  Receipt Date: 20250122
  Transmission Date: 20250409
  Serious: Yes (Hospitalization, Other)
  Sender: AZURITY PHARMACEUTICALS
  Company Number: US-AZURITY PHARMACEUTICALS, INC.-AZR202501-000359

PATIENT
  Age: 17 Year
  Sex: Female

DRUGS (2)
  1. METHOTREXATE [Suspect]
     Active Substance: METHOTREXATE
     Indication: T-cell type acute leukaemia
     Route: 065
     Dates: start: 202104
  2. METHYLPREDNISOLONE ACETATE [Suspect]
     Active Substance: METHYLPREDNISOLONE ACETATE
     Indication: Immune recovery uveitis
     Route: 042
     Dates: start: 202305

REACTIONS (7)
  - Cystoid macular oedema [Recovered/Resolved]
  - Leukopenia [Unknown]
  - Cytomegalovirus chorioretinitis [Recovered/Resolved]
  - Back pain [Unknown]
  - Arthralgia [Unknown]
  - Lymphadenopathy [Unknown]
  - Drug intolerance [Unknown]

NARRATIVE: CASE EVENT DATE: 20221101
